FAERS Safety Report 10033314 (Version 3)
Quarter: 2016Q1

REPORT INFORMATION
  Report Type: Report from Study
  Country: CZ (occurrence: CZ)
  Receive Date: 20140325
  Receipt Date: 20160204
  Transmission Date: 20160525
  Serious: Yes (Life-Threatening, Hospitalization, Disabling)
  Sender: FDA-Public Use
  Company Number: CZ-ROCHE-1369433

PATIENT
  Age: 72 Year
  Sex: Female

DRUGS (3)
  1. RANIBIZUMAB [Suspect]
     Active Substance: RANIBIZUMAB
     Dosage: (LEFT EYE)
     Route: 050
     Dates: start: 20140223
  2. RANIBIZUMAB [Suspect]
     Active Substance: RANIBIZUMAB
     Indication: NEOVASCULAR AGE-RELATED MACULAR DEGENERATION
     Dosage: (LEFT EYE)
     Route: 050
     Dates: start: 20140217
  3. RANIBIZUMAB [Suspect]
     Active Substance: RANIBIZUMAB
     Dosage: (LEFT EYE)
     Route: 050
     Dates: start: 20150330

REACTIONS (1)
  - Vertebrobasilar insufficiency [Recovering/Resolving]

NARRATIVE: CASE EVENT DATE: 20140226
